FAERS Safety Report 7219389-3 (Version None)
Quarter: 2011Q1

REPORT INFORMATION
  Report Type: 
  Country: None (occurrence: None)
  Receive Date: 20110111
  Receipt Date: 20110105
  Transmission Date: 20110831
  Serious: Yes (Hospitalization, Other)
  Sender: FDA-Public Use
  Company Number: US-PFIZER INC-2011003283

PATIENT
  Sex: Female
  Weight: 97.052 kg

DRUGS (4)
  1. ARTHROTEC [Suspect]
     Indication: MENISCUS LESION
  2. ARTHROTEC [Suspect]
     Indication: OSTEOARTHRITIS
  3. ARTHROTEC [Suspect]
     Indication: LUMBAR SPINAL STENOSIS
  4. ARTHROTEC [Suspect]
     Indication: CERVICAL SPINAL STENOSIS
     Dosage: 75 MG, 2X/DAY
     Route: 048
     Dates: start: 20101001, end: 20101228

REACTIONS (1)
  - IDIOPATHIC THROMBOCYTOPENIC PURPURA [None]
